FAERS Safety Report 11231062 (Version 1)
Quarter: 2015Q2

REPORT INFORMATION
  Report Type: Spontaneous
  Country: US (occurrence: None)
  Receive Date: 20150629
  Receipt Date: 20150629
  Transmission Date: 20150821
  Serious: Yes (Other)
  Sender: FDA-Public Use
  Company Number: None

PATIENT
  Age: 17 Year
  Sex: Female
  Weight: 72.58 kg

DRUGS (8)
  1. KRILL OIL [Concomitant]
     Active Substance: DIETARY SUPPLEMENT
  2. CALCIUM [Concomitant]
     Active Substance: CALCIUM
  3. LUTIN [Concomitant]
  4. PROBIOTIC [Concomitant]
     Active Substance: PROBIOTICS NOS
  5. PATANOL [Concomitant]
     Active Substance: OLOPATADINE HYDROCHLORIDE
  6. MULTI VITAMIN [Concomitant]
     Active Substance: VITAMINS
  7. CLARITIN [Concomitant]
     Active Substance: LORATADINE
  8. MINOCIN [Suspect]
     Active Substance: MINOCYCLINE HYDROCHLORIDE
     Indication: ACNE
     Dosage: 1 OR 2 PILLS, DON^T REMEMBER
     Route: 048
     Dates: start: 20020826, end: 20030101

REACTIONS (7)
  - Blindness [None]
  - CSF volume increased [None]
  - Skin irritation [None]
  - Back pain [None]
  - Migraine [None]
  - Vomiting [None]
  - Mass [None]

NARRATIVE: CASE EVENT DATE: 20030128
